FAERS Safety Report 5717080-3 (Version None)
Quarter: 2008Q2

REPORT INFORMATION
  Report Type: 
  Country: None (occurrence: None)
  Receive Date: 20080423
  Receipt Date: 20080416
  Transmission Date: 20081010
  Serious: Yes (Other)
  Sender: FDA-Public Use
  Company Number: 2008009645

PATIENT
  Age: 57 Year
  Sex: Female
  Weight: 67.1324 kg

DRUGS (2)
  1. ZYRTEC [Suspect]
     Indication: SINUS DISORDER
     Dosage: 1 TABLET PER NIGHT (10 MG) ORAL
     Route: 048
     Dates: start: 20080326
  2. ADVAIR DISKUS 100/50 [Concomitant]

REACTIONS (1)
  - BLOOD PRESSURE INCREASED [None]
